FAERS Safety Report 10101975 (Version 1)
Quarter: 2014Q2

REPORT INFORMATION
  Report Type: Spontaneous
  Country: US (occurrence: US)
  Receive Date: 20140424
  Receipt Date: 20140424
  Transmission Date: 20141212
  Serious: Yes (Hospitalization)
  Sender: FDA-Public Use
  Company Number: US-PFIZER INC-2014114080

PATIENT
  Age: 63 Year
  Sex: Female
  Weight: 99.77 kg

DRUGS (1)
  1. LYRICA [Suspect]
     Indication: NEUROPATHY PERIPHERAL
     Dosage: UNK,2X/DAY
     Route: 048

REACTIONS (1)
  - Back disorder [Unknown]
